FAERS Safety Report 23151766 (Version 1)
Quarter: 2023Q4

REPORT INFORMATION
  Report Type: Report from Study
  Country: US (occurrence: US)
  Receive Date: 20231107
  Receipt Date: 20231107
  Transmission Date: 20240110
  Serious: No
  Sender: FDA-Public Use
  Company Number: US-002147023-NVSC2023US234722

PATIENT
  Sex: Male

DRUGS (1)
  1. KESIMPTA [Suspect]
     Active Substance: OFATUMUMAB
     Indication: Product used for unknown indication
     Dosage: UNK
     Route: 065

REACTIONS (8)
  - Chest pain [Unknown]
  - Abdominal pain upper [Unknown]
  - Insomnia [Unknown]
  - Headache [Recovering/Resolving]
  - Abdominal distension [Unknown]
  - Balance disorder [Unknown]
  - Fatigue [Unknown]
  - Back pain [Unknown]
